FAERS Safety Report 24285324 (Version 1)
Quarter: 2024Q3

REPORT INFORMATION
  Report Type: Spontaneous
  Country: US (occurrence: US)
  Receive Date: 20240905
  Receipt Date: 20240905
  Transmission Date: 20241016
  Serious: No
  Sender: RECKITT BENCKISER
  Company Number: US-PROD-AS2-212756134-RB-085561-2024

PATIENT
  Age: 44 Year
  Sex: Male

DRUGS (1)
  1. MUCINEX MAXIMUM STRENGTH [Suspect]
     Active Substance: GUAIFENESIN
     Indication: Product used for unknown indication
     Dosage: TOOK 4 TIMES A DAY EVERY 4 HOURS
     Route: 048
     Dates: start: 20240213

REACTIONS (1)
  - Accidental overdose [Unknown]
